FAERS Safety Report 10640184 (Version 3)
Quarter: 2015Q1

REPORT INFORMATION
  Report Type: Spontaneous
  Country: PT (occurrence: PT)
  Receive Date: 20141209
  Receipt Date: 20150316
  Transmission Date: 20150720
  Serious: Yes (Other)
  Sender: FDA-Public Use
  Company Number: PT-JNJFOC-20141119114

PATIENT
  Sex: Female

DRUGS (1)
  1. STELARA [Suspect]
     Active Substance: USTEKINUMAB
     Indication: PRODUCT USED FOR UNKNOWN INDICATION
     Dosage: 12/12 WEEK
     Route: 058

REACTIONS (2)
  - Toxic skin eruption [Recovering/Resolving]
  - Dermatitis exfoliative [Unknown]

NARRATIVE: CASE EVENT DATE: 2014
